FAERS Safety Report 23565098 (Version 1)
Quarter: 2024Q1

REPORT INFORMATION
  Report Type: Spontaneous
  Country: PL (occurrence: PL)
  Receive Date: 20240226
  Receipt Date: 20240226
  Transmission Date: 20240410
  Serious: Yes (Death, Life-Threatening, Hospitalization)
  Sender: FDA-Public Use
  Company Number: PL-MERCA-20230701

PATIENT
  Age: 46 Year
  Sex: Female

DRUGS (4)
  1. WARFARIN [Suspect]
     Active Substance: WARFARIN
     Indication: Osteoarthritis
     Dosage: VARIOUS DOSAGES DEPENDENT ON INR
     Route: 065
  2. OMEPRAZOLE [Interacting]
     Active Substance: OMEPRAZOLE
     Indication: Abdominal pain
     Dosage: 40.000MG QD
     Route: 065
  3. ACETAMINOPHEN [Interacting]
     Active Substance: ACETAMINOPHEN
     Indication: Arthralgia
     Dosage: 1000 MG(2 X 1 000 MG DURING THE DAY)
     Route: 065
  4. PROPAFENONE [Interacting]
     Active Substance: PROPAFENONE
     Indication: Atrial fibrillation
     Dosage: 150 MG, QOD
     Route: 065

REACTIONS (2)
  - Drug interaction [Fatal]
  - Subarachnoid haemorrhage [Fatal]
